FAERS Safety Report 15448236 (Version 2)
Quarter: 2018Q4

REPORT INFORMATION
  Report Type: Report from Study
  Country: None (occurrence: RO)
  Receive Date: 20180929
  Receipt Date: 20181102
  Transmission Date: 20190204
  Serious: Yes (Death, Other)
  Sender: FDA-Public Use
  Company Number: RO-ABBVIE-18S-135-2502252-00

PATIENT
  Age: 74 Year
  Sex: Female

DRUGS (1)
  1. DUODOPA [Suspect]
     Active Substance: CARBIDOPA\LEVODOPA
     Indication: PARKINSON^S DISEASE
     Dosage: DM=8.00 DC=2.80 ED=1.50
     Route: 058
     Dates: start: 20141111

REACTIONS (5)
  - Death [Fatal]
  - Pancreatic carcinoma [Not Recovered/Not Resolved]
  - Disability [Not Recovered/Not Resolved]
  - General physical health deterioration [Not Recovered/Not Resolved]
  - Immobile [Unknown]

NARRATIVE: CASE EVENT DATE: 20180925
